FAERS Safety Report 9913293 (Version 1)
Quarter: 2014Q1

REPORT INFORMATION
  Report Type: Spontaneous
  Country: SE (occurrence: None)
  Receive Date: 20140212
  Receipt Date: 20140212
  Transmission Date: 20141002
  Serious: Yes (Death)
  Sender: FDA-Public Use
  Company Number: 2014P1000984

PATIENT
  Age: 81 Year
  Sex: Female

DRUGS (5)
  1. CITALOPRAM [Suspect]
  2. MIANSERINE [Suspect]
  3. PARACETAMOL [Suspect]
  4. PROPIOMAZINE [Suspect]
  5. PHENYTOIN [Suspect]

REACTIONS (2)
  - Completed suicide [None]
  - Toxicity to various agents [None]
